FAERS Safety Report 23222228 (Version 2)
Quarter: 2024Q1

REPORT INFORMATION
  Report Type: Spontaneous
  Country: PL (occurrence: PL)
  Receive Date: 20231123
  Receipt Date: 20240219
  Transmission Date: 20240410
  Serious: Yes (Other)
  Sender: FDA-Public Use
  Company Number: PL-002147023-NVSC2023PL158354

PATIENT
  Age: 69 Year
  Sex: Female

DRUGS (11)
  1. FULVESTRANT [Suspect]
     Active Substance: FULVESTRANT
     Indication: Product used for unknown indication
     Dosage: 500 MG, QD (ON DAY 1, 15, 19 AND THEN ONCE A MONTH)
     Route: 065
  2. KISQALI [Suspect]
     Active Substance: RIBOCICLIB
     Dosage: 400 MG (2X200MG)
     Route: 065
  3. KISQALI [Suspect]
     Active Substance: RIBOCICLIB
     Dosage: 400 MG (2X200MG)
     Route: 065
  4. KISQALI [Suspect]
     Active Substance: RIBOCICLIB
     Dosage: 600 MG (FOR 21 DAYS / 28-DAYS CYCLE)
     Route: 065
  5. KISQALI [Suspect]
     Active Substance: RIBOCICLIB
     Indication: Breast cancer
     Dosage: 600 MG (FOR 21 DAYS)
     Route: 065
     Dates: end: 202204
  6. ZOLEDRONIC ACID [Suspect]
     Active Substance: ZOLEDRONIC ACID
     Indication: Product used for unknown indication
     Dosage: UNK
     Route: 065
  7. BISOPROLOL [Concomitant]
     Active Substance: BISOPROLOL\BISOPROLOL FUMARATE
     Indication: Product used for unknown indication
     Dosage: 2.5 MG
     Route: 065
  8. Glibetic [Concomitant]
     Indication: Product used for unknown indication
     Dosage: UNK (1X1)
     Route: 065
  9. NEUROLIPON [Concomitant]
     Indication: Product used for unknown indication
     Dosage: 600 MG (1X1)
     Route: 065
  10. METFORMIN HYDROCHLORIDE [Concomitant]
     Active Substance: METFORMIN HYDROCHLORIDE
     Indication: Product used for unknown indication
     Dosage: UNK (850 MG -0-1000 MG), UNK (850 MG -0-1000 MG) (STRENGTH 500 AND 850 MG)
     Route: 065
  11. TRAZODONE HYDROCHLORIDE [Concomitant]
     Active Substance: TRAZODONE HYDROCHLORIDE
     Indication: Product used for unknown indication
     Dosage: 150 MG (BEFORE SLEEP)
     Route: 065

REACTIONS (6)
  - Fatigue [Unknown]
  - Neutropenia [Unknown]
  - Pain in extremity [Unknown]
  - Appetite disorder [Unknown]
  - Dry skin [Unknown]
  - Disease progression [Unknown]

NARRATIVE: CASE EVENT DATE: 20210104
